FAERS Safety Report 8717728 (Version 7)
Quarter: 2013Q3

REPORT INFORMATION
  Report Type: Report from Study
  Country: BE (occurrence: BE)
  Receive Date: 20120810
  Receipt Date: 20130828
  Transmission Date: 20140515
  Serious: Yes (Hospitalization)
  Sender: FDA-Public Use
  Company Number: BE-EISAI INC-E7389-02835-CLI-BE

PATIENT
  Age: 55 Year
  Sex: Female
  Weight: 101 kg

DRUGS (16)
  1. E7389 (BOLD) [Suspect]
     Indication: BREAST CANCER
     Route: 041
     Dates: start: 20120531, end: 20120531
  2. E7389 (BOLD) [Suspect]
     Dosage: REDUCED DOSE
     Route: 041
     Dates: start: 201206, end: 20120717
  3. LASIX [Concomitant]
     Route: 048
  4. DEPAKINE [Concomitant]
     Route: 048
  5. NOVONORM [Concomitant]
     Route: 048
  6. BEFACT [Concomitant]
     Route: 048
  7. VASEXTEN [Concomitant]
     Route: 048
  8. PANTOMED [Concomitant]
     Route: 048
  9. ZOCOR [Concomitant]
     Route: 048
  10. FOLAVIT [Concomitant]
     Route: 048
  11. MOVICOL [Concomitant]
     Route: 048
  12. DOMPERIDONE [Concomitant]
     Route: 048
  13. TRAMADOL [Concomitant]
     Route: 048
  14. TAVANIC [Concomitant]
     Route: 048
  15. MOTILIUM [Concomitant]
     Route: 048
  16. XANAX [Concomitant]
     Route: 048

REACTIONS (2)
  - Disseminated intravascular coagulation [Recovered/Resolved]
  - Sepsis [Recovered/Resolved]
